FAERS Safety Report 10365337 (Version 1)
Quarter: 2014Q3

REPORT INFORMATION
  Report Type: Spontaneous
  Country: US (occurrence: US)
  Receive Date: 20140806
  Receipt Date: 20140806
  Transmission Date: 20150326
  Serious: No
  Sender: FDA-Public Use
  Company Number: US-PFIZER INC-2014216569

PATIENT
  Sex: Female

DRUGS (3)
  1. ADVIL [Suspect]
     Active Substance: IBUPROFEN
     Dosage: 5 TABLETS AT A TIME
     Dates: start: 20140731
  2. ADVIL [Suspect]
     Active Substance: IBUPROFEN
     Dosage: 2 TABLETS, EVERY 4-5 HOURS
  3. TYLENOL [Concomitant]
     Active Substance: ACETAMINOPHEN
     Indication: MUSCLE DISORDER
     Dosage: UNK

REACTIONS (2)
  - Extra dose administered [Unknown]
  - Photopsia [Unknown]

NARRATIVE: CASE EVENT DATE: 2014
